FAERS Safety Report 16542638 (Version 1)
Quarter: 2019Q3

REPORT INFORMATION
  Report Type: Report from Study
  Country: None (occurrence: IL)
  Receive Date: 20190709
  Receipt Date: 20190709
  Transmission Date: 20191004
  Serious: Yes (Death)
  Sender: FDA-Public Use
  Company Number: IL-ABBVIE-18S-082-2460634-00

PATIENT
  Age: 76 Year
  Sex: Male

DRUGS (2)
  1. DUODOPA [Suspect]
     Active Substance: CARBIDOPA\LEVODOPA
     Dosage: CURRENT MORNING DOSE- 17 ML, CONTINUOUS RATE- 4.5 ML/ HOUR,?CURRENT EXTRA DOSE- 1.5 ML
     Route: 050
  2. DUODOPA [Suspect]
     Active Substance: CARBIDOPA\LEVODOPA
     Indication: PARKINSON^S DISEASE
     Dosage: MD 17ML, CD 4.5ML/HOUR, ED 1.5ML
     Route: 050
     Dates: start: 20160308

REACTIONS (14)
  - Gastrointestinal infection [Fatal]
  - Bradykinesia [Unknown]
  - Malaise [Fatal]
  - Abdominal pain lower [Unknown]
  - Muscle rigidity [Unknown]
  - Urinary tract infection [Unknown]
  - Decreased appetite [Unknown]
  - Dyskinesia [Unknown]
  - Somnolence [Unknown]
  - Loss of consciousness [Fatal]
  - Gait disturbance [Unknown]
  - Constipation [Fatal]
  - On and off phenomenon [Unknown]
  - Therapeutic product effect decreased [Unknown]

NARRATIVE: CASE EVENT DATE: 2019
